FAERS Safety Report 11727955 (Version 1)
Quarter: 2015Q4

REPORT INFORMATION
  Report Type: Spontaneous
  Country: US (occurrence: US)
  Receive Date: 20151110
  Receipt Date: 20151110
  Transmission Date: 20160304
  Serious: No
  Sender: FDA-Public Use
  Company Number: US-ELI_LILLY_AND_COMPANY-US201110003445

PATIENT
  Age: 73 Year
  Sex: Male

DRUGS (1)
  1. FORTEO [Suspect]
     Active Substance: TERIPARATIDE
     Indication: OSTEOPOROSIS
     Dosage: 20 UG, QD
     Dates: end: 201110

REACTIONS (14)
  - Weight decreased [Not Recovered/Not Resolved]
  - Bone scan abnormal [Unknown]
  - Malaise [Unknown]
  - Arthralgia [Recovered/Resolved]
  - Diarrhoea [Recovered/Resolved]
  - Tenderness [Unknown]
  - Pain in extremity [Not Recovered/Not Resolved]
  - Gait disturbance [Unknown]
  - Decreased appetite [Recovering/Resolving]
  - Abdominal discomfort [Unknown]
  - Mass [Not Recovered/Not Resolved]
  - Osteoarthritis [Unknown]
  - Feeling abnormal [Recovering/Resolving]
  - Arthralgia [Not Recovered/Not Resolved]

NARRATIVE: CASE EVENT DATE: 201110
